FAERS Safety Report 7523925-7 (Version None)
Quarter: 2011Q2

REPORT INFORMATION
  Report Type: 
  Country: None (occurrence: None)
  Receive Date: 20110603
  Receipt Date: 20110525
  Transmission Date: 20111010
  Serious: Yes (Hospitalization)
  Sender: FDA-Public Use
  Company Number: US-RB-020621-11

PATIENT
  Sex: Female

DRUGS (2)
  1. SUBOXONE [Suspect]
     Indication: PRODUCT USED FOR UNKNOWN INDICATION
     Dosage: UNKNOWN DOSING INFORMATION
     Route: 065
  2. SUBOXONE [Suspect]
     Indication: PRODUCT USED FOR UNKNOWN INDICATION
     Dosage: SUBLINGUAL FILM / UNKNOWN DOSING INFORMATION
     Route: 065

REACTIONS (8)
  - HEADACHE [None]
  - HALLUCINATION [None]
  - OFF LABEL USE [None]
  - TREMOR [None]
  - DERMATILLOMANIA [None]
  - DRUG WITHDRAWAL SYNDROME [None]
  - SCAB [None]
  - PRURITUS GENERALISED [None]
